FAERS Safety Report 11927086 (Version 2)
Quarter: 2016Q1

REPORT INFORMATION
  Report Type: Spontaneous
  Country: US (occurrence: US)
  Receive Date: 20160119
  Receipt Date: 20160120
  Transmission Date: 20160526
  Serious: Yes (Death, Hospitalization, Other)
  Sender: FDA-Public Use
  Company Number: US-DRREDDYS-USA/USA/16/0055806

PATIENT
  Age: 50 Year
  Sex: Male
  Weight: 74.4 kg

DRUGS (11)
  1. CLOZAPINE. [Interacting]
     Active Substance: CLOZAPINE
     Route: 065
  2. CLOZAPINE. [Interacting]
     Active Substance: CLOZAPINE
     Route: 065
  3. DIVALPROEX SODIUM. [Interacting]
     Active Substance: DIVALPROEX SODIUM
     Indication: SCHIZOAFFECTIVE DISORDER
     Route: 065
  4. QUETIAPINE FUMARATE TABLETS [Suspect]
     Active Substance: QUETIAPINE FUMARATE
     Indication: SCHIZOAFFECTIVE DISORDER
     Route: 065
  5. CLOZAPINE. [Interacting]
     Active Substance: CLOZAPINE
     Indication: SCHIZOAFFECTIVE DISORDER
     Route: 065
  6. HYDROCHLOROTHIAZIDE. [Concomitant]
     Active Substance: HYDROCHLOROTHIAZIDE
     Indication: HYPERTENSION
     Route: 065
  7. CLOZAPINE. [Interacting]
     Active Substance: CLOZAPINE
     Route: 065
  8. BENZTROPINE [Concomitant]
     Active Substance: BENZTROPINE
     Indication: SCHIZOAFFECTIVE DISORDER
     Route: 065
  9. CLOZAPINE. [Interacting]
     Active Substance: CLOZAPINE
     Route: 065
  10. LISINOPRIL. [Concomitant]
     Active Substance: LISINOPRIL
     Indication: HYPERTENSION
     Route: 065
  11. CLOZAPINE. [Interacting]
     Active Substance: CLOZAPINE
     Route: 065

REACTIONS (4)
  - Psychotic disorder [Unknown]
  - Tardive dyskinesia [Unknown]
  - Myocarditis [Fatal]
  - Drug interaction [Unknown]
